FAERS Safety Report 16931027 (Version 1)
Quarter: 2019Q4

REPORT INFORMATION
  Report Type: Spontaneous
  Country: US (occurrence: US)
  Receive Date: 20191017
  Receipt Date: 20191017
  Transmission Date: 20200122
  Serious: Yes (Death, Hospitalization)
  Sender: FDA-Public Use
  Company Number: US-FRESENIUS KABI-FK201911304

PATIENT
  Age: 66 Year
  Sex: Male

DRUGS (9)
  1. PREDNISONE. [Suspect]
     Active Substance: PREDNISONE
     Indication: GRAFT VERSUS HOST DISEASE
  2. AZACITIDINE. [Suspect]
     Active Substance: AZACITIDINE
     Indication: ACUTE MYELOID LEUKAEMIA
  3. METHOTREXATE (MANUFACTURER UNKNOWN) [Suspect]
     Active Substance: METHOTREXATE
     Indication: ACUTE MYELOID LEUKAEMIA
     Route: 037
  4. BUDESONIDE. [Suspect]
     Active Substance: BUDESONIDE
     Indication: GRAFT VERSUS HOST DISEASE
  5. FLUDARABINE [Suspect]
     Active Substance: FLUDARABINE PHOSPHATE
     Indication: BONE MARROW CONDITIONING REGIMEN
     Route: 065
     Dates: start: 201106
  6. PREDNISONE. [Suspect]
     Active Substance: PREDNISONE
  7. BUDESONIDE. [Suspect]
     Active Substance: BUDESONIDE
  8. RITUXIMAB. [Suspect]
     Active Substance: RITUXIMAB
     Indication: MYOPATHY
     Dates: start: 201605
  9. BUSULFAN. [Suspect]
     Active Substance: BUSULFAN
     Indication: BONE MARROW CONDITIONING REGIMEN
     Route: 065
     Dates: start: 201106

REACTIONS (4)
  - Sinusitis fungal [Fatal]
  - Septic shock [Fatal]
  - Infection [Fatal]
  - Mucormycosis [Fatal]
